FAERS Safety Report 23560411 (Version 2)
Quarter: 2024Q2

REPORT INFORMATION
  Report Type: Spontaneous
  Country: US (occurrence: US)
  Receive Date: 20240223
  Receipt Date: 20240408
  Transmission Date: 20240717
  Serious: No
  Sender: FDA-Public Use
  Company Number: US-E2BLSMVVAL-SPO/USA/24/0002655

PATIENT
  Age: 65 Year
  Sex: Female

DRUGS (1)
  1. NICOTINE TRANSDERMAL SYSTEM [Suspect]
     Active Substance: NICOTINE
     Indication: Ex-tobacco user
     Dosage: 1 PATCH PER DAY
     Route: 062
     Dates: start: 20240201

REACTIONS (2)
  - Wrong technique in product usage process [Unknown]
  - Off label use [Unknown]
